FAERS Safety Report 8185212-6 (Version None)
Quarter: 2012Q1

REPORT INFORMATION
  Report Type: 
  Country: None (occurrence: None)
  Receive Date: 20120305
  Receipt Date: 20120227
  Transmission Date: 20120608
  Serious: Yes (Hospitalization)
  Sender: FDA-Public Use
  Company Number: PHHY2012GB017446

PATIENT
  Age: 61 Year
  Sex: Male

DRUGS (1)
  1. SIMVASTATIN [Suspect]
     Indication: HYPERCHOLESTEROLAEMIA
     Dosage: 40 MG, UNK

REACTIONS (6)
  - THROMBOTIC THROMBOCYTOPENIC PURPURA [None]
  - MICROANGIOPATHIC HAEMOLYTIC ANAEMIA [None]
  - HEADACHE [None]
  - AGITATION [None]
  - CONFUSIONAL STATE [None]
  - THROMBOCYTOPENIA [None]
